FAERS Safety Report 7074806-7 (Version None)
Quarter: 2010Q4

REPORT INFORMATION
  Report Type: 
  Country: None (occurrence: None)
  Receive Date: 20101029
  Receipt Date: 20101015
  Transmission Date: 20110411
  Serious: Yes (Other)
  Sender: FDA-Public Use
  Company Number: PL-GENENTECH-308430

PATIENT
  Age: 20 Year
  Sex: Female

DRUGS (2)
  1. RITUXIMAB [Suspect]
     Dosage: UNK
     Route: 065
  2. CELLCEPT [Suspect]
     Dosage: 500 MG, UNK
     Route: 065
     Dates: start: 20090601

REACTIONS (4)
  - ABDOMINAL PAIN UPPER [None]
  - DIARRHOEA [None]
  - PROTEINURIA [None]
  - TRANSPLANT REJECTION [None]
